FAERS Safety Report 9097716 (Version 1)
Quarter: 2013Q1

REPORT INFORMATION
  Report Type: Spontaneous
  Country: FR (occurrence: FR)
  Receive Date: 20130212
  Receipt Date: 20130212
  Transmission Date: 20140127
  Serious: Yes (Hospitalization)
  Sender: FDA-Public Use
  Company Number: FR-BRISTOL-MYERS SQUIBB COMPANY-17347634

PATIENT
  Age: 72 Year
  Sex: Male

DRUGS (2)
  1. COUMADIN TABS 5 MG [Suspect]
     Indication: PULMONARY EMBOLISM
     Dosage: 1DF: 0.75 UNITS NOS
     Route: 048
  2. PHYSIOTENS [Concomitant]
     Dosage: 1DF: 0.4 UNITS NOS

REACTIONS (1)
  - Mallory-Weiss syndrome [Recovered/Resolved]
